FAERS Safety Report 9465463 (Version 3)
Quarter: 2013Q4

REPORT INFORMATION
  Report Type: Spontaneous
  Country: IT (occurrence: IT)
  Receive Date: 20130820
  Receipt Date: 20131011
  Transmission Date: 20140711
  Serious: Yes (Hospitalization)
  Sender: FDA-Public Use
  Company Number: IT-009507513-1308ITA005881

PATIENT
  Age: 53 Year
  Sex: Female

DRUGS (5)
  1. MIRTAZAPINE [Suspect]
     Indication: INTENTIONAL SELF-INJURY
     Dosage: UNSPECIFIED NUMBER OF UNITS
     Route: 048
     Dates: start: 20130730, end: 20130730
  2. DELORAZEPAM [Suspect]
     Indication: INTENTIONAL SELF-INJURY
     Dosage: UNSPECIFIED NUMBER OF UNITS
     Route: 048
     Dates: start: 20130730, end: 20130730
  3. SERTRALINE HYDROCHLORIDE [Suspect]
     Indication: INTENTIONAL SELF-INJURY
     Dosage: UNSPECIFIED NUMBER OF UNITS
     Route: 048
     Dates: start: 20130730, end: 20130730
  4. QUETIAPINE FUMARATE [Suspect]
     Indication: INTENTIONAL SELF-INJURY
     Dosage: UNSPECIFIED NUMBER OF UNITS
     Route: 048
     Dates: start: 20130730, end: 20130730
  5. PREGABALIN [Suspect]
     Indication: INTENTIONAL SELF-INJURY
     Dosage: UNSPECIFIED NUMBER OF UNITS
     Route: 048
     Dates: start: 20130730, end: 20130730

REACTIONS (3)
  - Drug abuse [Recovering/Resolving]
  - Electrocardiogram QT prolonged [Recovering/Resolving]
  - Toxicity to various agents [Recovering/Resolving]
